FAERS Safety Report 7820070-8 (Version None)
Quarter: 2011Q4

REPORT INFORMATION
  Report Type: 
  Country: None (occurrence: None)
  Receive Date: 20111018
  Receipt Date: 20111011
  Transmission Date: 20120403
  Serious: Yes (Other)
  Sender: FDA-Public Use
  Company Number: CN-PFIZER INC-2011241930

PATIENT
  Age: 33 Year
  Sex: Male

DRUGS (1)
  1. VIAGRA [Suspect]
     Dosage: 100 MG, ONCE
     Route: 048
     Dates: start: 20110923

REACTIONS (4)
  - ASTHENIA [None]
  - BLINDNESS TRANSIENT [None]
  - MYOCARDIAL ISCHAEMIA [None]
  - FALL [None]
